FAERS Safety Report 7132689-0 (Version None)
Quarter: 2010Q4

REPORT INFORMATION
  Report Type: 
  Country: None (occurrence: None)
  Receive Date: 20101117
  Receipt Date: 20101104
  Transmission Date: 20110411
  Serious: Yes (Other)
  Sender: FDA-Public Use
  Company Number: US-1183976

PATIENT
  Age: 88 Year
  Sex: Female
  Weight: 77.1115 kg

DRUGS (3)
  1. CIPRODEX [Suspect]
     Indication: OTITIS EXTERNA
     Dosage: (5 GTTS X10 DAYS AURICULAR (OTIC))
     Route: 001
     Dates: start: 20101018, end: 20101101
  2. TYLENOL (CAPLET) [Concomitant]
  3. GLUCOSAMINE CHONDROITIN [Concomitant]

REACTIONS (4)
  - HAEMOPTYSIS [None]
  - HAEMORRHAGE [None]
  - HYPERAESTHESIA [None]
  - HYPOACUSIS [None]
